FAERS Safety Report 7569448-0 (Version None)
Quarter: 2011Q2

REPORT INFORMATION
  Report Type: 
  Country: None (occurrence: None)
  Receive Date: 20110624
  Receipt Date: 20110616
  Transmission Date: 20111010
  Serious: Yes (Other)
  Sender: FDA-Public Use
  Company Number: US-BIOGENIDEC-2011BI018771

PATIENT
  Age: 67 Year
  Sex: Female

DRUGS (4)
  1. LEXAPRO [Concomitant]
  2. TYSABRI [Suspect]
     Indication: MULTIPLE SCLEROSIS
     Route: 042
     Dates: start: 20070726
  3. LYRICA [Concomitant]
  4. BACLOFEN [Concomitant]
     Route: 048

REACTIONS (3)
  - POOR PERIPHERAL CIRCULATION [None]
  - INGROWING NAIL [None]
  - THROMBOSIS [None]
